FAERS Safety Report 8470201-4 (Version None)
Quarter: 2012Q2

REPORT INFORMATION
  Report Type: 
  Country: None (occurrence: None)
  Receive Date: 20120621
  Receipt Date: 20120621
  Transmission Date: 20120825
  Serious: Yes (Hospitalization)
  Sender: FDA-Public Use
  Company Number: None

PATIENT
  Age: 54 Year
  Sex: Male
  Weight: 109.77 kg

DRUGS (11)
  1. LOSARTAN POTASSIUM [Concomitant]
  2. ALLOPURINOL [Concomitant]
  3. MULTI-VITAMIN [Concomitant]
  4. RIBAVIRIN [Concomitant]
  5. TELAPREVIR [Concomitant]
  6. FLUOXETINE [Concomitant]
  7. PEGASYS [Suspect]
     Indication: HEPATITIS C
     Dosage: 180 MCG WEEKLY SUBCUTANEOUSLY
     Route: 058
     Dates: start: 20120410
  8. CYCLOSPORINE [Concomitant]
  9. PEGASYS [Concomitant]
  10. MYFORTIC [Concomitant]
  11. TAMSULOSIN HCL [Concomitant]

REACTIONS (4)
  - PANCYTOPENIA [None]
  - NEUTROPENIA [None]
  - PANCREATITIS [None]
  - LIVER FUNCTION TEST ABNORMAL [None]
